FAERS Safety Report 5695070-7 (Version None)
Quarter: 2008Q2

REPORT INFORMATION
  Report Type: 
  Country: None (occurrence: None)
  Receive Date: 20080404
  Receipt Date: 20080305
  Transmission Date: 20081010
  Serious: No
  Sender: FDA-Public Use
  Company Number: US-BAYER-200816405NA

PATIENT
  Age: 48 Year
  Sex: Male

DRUGS (4)
  1. ULTRAVIST 300 [Suspect]
     Indication: COMPUTERISED TOMOGRAM ABDOMEN
     Route: 042
     Dates: start: 20080305, end: 20080305
  2. BENADRYL [Concomitant]
     Indication: PREMEDICATION
     Dates: start: 20080305, end: 20080305
  3. PREDNISONE [Concomitant]
     Indication: PREMEDICATION
     Dosage: TOTAL DAILY DOSE: 100 MG
     Dates: start: 20080305, end: 20080305
  4. IV SOLUTION [Concomitant]
     Indication: URTICARIA

REACTIONS (1)
  - URTICARIA [None]
